FAERS Safety Report 8544985-0 (Version None)
Quarter: 2012Q3

REPORT INFORMATION
  Report Type: 
  Country: None (occurrence: None)
  Receive Date: 20120727
  Receipt Date: 20120720
  Transmission Date: 20120928
  Serious: Yes (Death, Life-Threatening, Hospitalization, Other)
  Sender: FDA-Public Use
  Company Number: US-GLAXOSMITHKLINE-A0981398A

PATIENT
  Age: 54 Year
  Sex: Male

DRUGS (3)
  1. LOPID [Concomitant]
     Indication: HYPERTRIGLYCERIDAEMIA
     Dosage: 600MG TWICE PER DAY
     Route: 048
     Dates: start: 20110527
  2. CRESTOR [Concomitant]
     Indication: HYPERCHOLESTEROLAEMIA
     Dosage: 5MG PER DAY
     Route: 048
  3. LOVAZA [Suspect]
     Indication: HYPERTRIGLYCERIDAEMIA
     Dosage: 4CAP PER DAY
     Route: 048
     Dates: start: 20110816

REACTIONS (2)
  - ABDOMINAL PAIN UPPER [None]
  - PANCREATITIS ACUTE [None]
